FAERS Safety Report 9753497 (Version 1)
Quarter: 2013Q4

REPORT INFORMATION
  Report Type: Spontaneous
  Country: US (occurrence: None)
  Receive Date: 20131211
  Receipt Date: 20131211
  Transmission Date: 20140711
  Serious: Yes (Hospitalization)
  Sender: FDA-Public Use
  Company Number: UTC-041362

PATIENT
  Age: 57 Year
  Sex: Female

DRUGS (2)
  1. REMODULIN (10 MILLIGRAM/MILLILITERS INJECTION FOR INFUSION) (TREPROSTINIL SODIUM) [Suspect]
     Indication: COR PULMONALE CHRONIC
     Dosage: 210.24 UG/KG (0.146 UG/KG 1 IN 1 MIN)
     Route: 058
     Dates: start: 20131022
  2. ASPIRIN (ACETYLSALICYLIC ACID) [Concomitant]

REACTIONS (2)
  - Infusion site haemorrhage [None]
  - Haemorrhage subcutaneous [None]
